FAERS Safety Report 6822464-6 (Version None)
Quarter: 2010Q3

REPORT INFORMATION
  Report Type: 
  Country: None (occurrence: None)
  Receive Date: 20100707
  Receipt Date: 20100707
  Transmission Date: 20110219
  Serious: No
  Sender: FDA-Public Use
  Company Number: None

PATIENT
  Sex: Female
  Weight: 90 kg

DRUGS (3)
  1. HEPARIN [Suspect]
     Indication: DEEP VEIN THROMBOSIS
     Dosage: DRIP
     Dates: start: 20100604, end: 20100606
  2. LOVENOX [Suspect]
     Indication: DEEP VEIN THROMBOSIS
     Dosage: 90MG QDAY -LOVENOX- SQ
     Route: 058
     Dates: start: 20100604, end: 20100606
  3. WARFARIN SODIUM [Suspect]
     Indication: DEEP VEIN THROMBOSIS
     Dosage: 2.5MG, 2.5MG, 5MG QDAY PO
     Route: 048
     Dates: start: 20100604, end: 20100606

REACTIONS (3)
  - DIPLEGIA [None]
  - EXTRADURAL HAEMATOMA [None]
  - SPINAL COMPRESSION FRACTURE [None]
